FAERS Safety Report 14409394 (Version 1)
Quarter: 2018Q1

REPORT INFORMATION
  Report Type: Spontaneous
  Country: AU (occurrence: AU)
  Receive Date: 20180119
  Receipt Date: 20180119
  Transmission Date: 20180509
  Serious: Yes (Hospitalization, Other)
  Sender: FDA-Public Use
  Company Number: AU-ALKEM LABORATORIES LIMITED-AU-ALKEM-2018-00063

PATIENT
  Age: 32 Year
  Sex: Male

DRUGS (2)
  1. QUETIAPINE FUMARATE. [Suspect]
     Active Substance: QUETIAPINE FUMARATE
     Indication: BIPOLAR DISORDER
     Dosage: UNK
     Route: 065
  2. LITHIUM. [Concomitant]
     Active Substance: LITHIUM
     Indication: BIPOLAR DISORDER

REACTIONS (15)
  - Accidental overdose [Recovered/Resolved]
  - Toxicity to various agents [Recovered/Resolved]
  - Hypokalaemia [Recovered/Resolved]
  - C-reactive protein increased [Recovered/Resolved]
  - Orthostatic hypotension [Recovered/Resolved]
  - Loss of consciousness [Recovered/Resolved]
  - Hypothermia [Recovered/Resolved]
  - Head injury [Recovered/Resolved]
  - Subgaleal haematoma [Recovered/Resolved]
  - Blood creatine phosphokinase increased [Recovered/Resolved]
  - Joint dislocation [Recovered/Resolved]
  - Fall [Recovered/Resolved]
  - Contusion [Recovered/Resolved]
  - Sinus tachycardia [Recovered/Resolved]
  - Incontinence [Recovered/Resolved]
